FAERS Safety Report 5494463-0 (Version None)
Quarter: 2007Q4

REPORT INFORMATION
  Report Type: 
  Country: None (occurrence: None)
  Receive Date: 20071022
  Receipt Date: 20071022
  Transmission Date: 20080405
  Serious: Yes (Hospitalization)
  Sender: FDA-Public Use
  Company Number: None

PATIENT
  Age: 82 Year
  Sex: Male
  Weight: 70 kg

DRUGS (1)
  1. TYGACIL [Suspect]
     Indication: URINARY TRACT INFECTION
     Dosage: 50 MG Q12H IV
     Route: 042
     Dates: start: 20071003, end: 20071012

REACTIONS (1)
  - PANCREATITIS [None]
